FAERS Safety Report 25036637 (Version 1)
Quarter: 2025Q1

REPORT INFORMATION
  Report Type: Spontaneous
  Country: RU (occurrence: RU)
  Receive Date: 20250304
  Receipt Date: 20250304
  Transmission Date: 20250408
  Serious: Yes (Other)
  Sender: AMERICAN REGENT
  Company Number: RU-AMERICAN REGENT INC-2025000845

PATIENT
  Age: 20 Year
  Sex: Female
  Weight: 58.5 kg

DRUGS (1)
  1. VENOFER [Suspect]
     Active Substance: IRON SUCROSE
     Indication: Anaemia
     Route: 042
     Dates: start: 20250210, end: 20250210

REACTIONS (10)
  - Dermatitis [Recovering/Resolving]
  - Pallor [Recovering/Resolving]
  - Burning sensation [Recovering/Resolving]
  - Burning sensation [Recovering/Resolving]
  - Paraesthesia [Recovering/Resolving]
  - Vomiting [Recovering/Resolving]
  - Diarrhoea [Recovering/Resolving]
  - Abdominal pain upper [Recovering/Resolving]
  - Hypotension [Recovering/Resolving]
  - Dizziness [Recovering/Resolving]

NARRATIVE: CASE EVENT DATE: 20250210
